FAERS Safety Report 6389199-8 (Version None)
Quarter: 2009Q4

REPORT INFORMATION
  Report Type: 
  Country: None (occurrence: None)
  Receive Date: 20091006
  Receipt Date: 20090929
  Transmission Date: 20100525
  Serious: Yes (Hospitalization)
  Sender: FDA-Public Use
  Company Number: DE-BAYER-200934102GPV

PATIENT
  Age: 87 Year
  Sex: Female

DRUGS (1)
  1. AVELOX [Suspect]
     Indication: CHOLECYSTITIS ACUTE
     Dosage: UNIT DOSE: 400 MG
     Route: 042
     Dates: start: 20090515, end: 20090515

REACTIONS (1)
  - DRUG INTOLERANCE [None]
